FAERS Safety Report 8615861-X (Version None)
Quarter: 2012Q3

REPORT INFORMATION
  Report Type: 
  Country: None (occurrence: None)
  Receive Date: 20120823
  Receipt Date: 20120821
  Transmission Date: 20120928
  Serious: Yes (Life-Threatening, Hospitalization)
  Sender: FDA-Public Use
  Company Number: GB-ROCHE-1104713

PATIENT
  Age: 73 Year
  Sex: Female
  Weight: 61 kg

DRUGS (15)
  1. FERROUS FUMARATE [Concomitant]
  2. METFORMIN [Concomitant]
  3. OMEPRAZOLE [Concomitant]
  4. FLUTICASONE PROPIONATE/SALMETEROL [Concomitant]
  5. ALBUTEROL SULATE [Concomitant]
  6. RITUXIMAB [Suspect]
     Indication: RHEUMATOID ARTHRITIS
     Dosage: 6 MONTHS
  7. ALENDRONATE SODIUM [Concomitant]
  8. TIOTROPIUM BROMIDE [Concomitant]
  9. CLARITHROMYCIN [Concomitant]
     Dates: start: 20120612, end: 20120619
  10. AMITRIPTYLINE HYDROCHLORIDE [Concomitant]
  11. ACETAMINOPHEN AND CODEINE PHOSPHATE [Concomitant]
  12. LACRI-LUBE [Concomitant]
     Dosage: INTRAOCULAR
  13. PRAVASTATIN [Concomitant]
  14. PREDNISOLONE [Concomitant]
  15. FUROSEMIDE [Concomitant]

REACTIONS (6)
  - HYPOTENSION [None]
  - PNEUMONIA [None]
  - SEPSIS [None]
  - RENAL IMPAIRMENT [None]
  - DEHYDRATION [None]
  - ADRENAL SUPPRESSION [None]
